FAERS Safety Report 7302437-X (Version None)
Quarter: 2011Q1

REPORT INFORMATION
  Report Type: 
  Country: None (occurrence: None)
  Receive Date: 20110218
  Receipt Date: 20100323
  Transmission Date: 20110831
  Serious: No
  Sender: FDA-Public Use
  Company Number: US-ASTRAZENECA-2010SE12832

PATIENT
  Age: 934 Month
  Sex: Male
  Weight: 83.9 kg

DRUGS (7)
  1. SOTALOL HCL [Concomitant]
  2. METOPROLOL [Concomitant]
  3. HYDROCHLOROTHIAZIDE [Concomitant]
  4. COUMADIN [Concomitant]
  5. FINASTERIDE [Concomitant]
  6. RED YEAST RICE [Concomitant]
  7. FELODIPINE [Suspect]
     Indication: HYPERTENSION
     Route: 048
     Dates: start: 20100101

REACTIONS (1)
  - THERAPEUTIC RESPONSE UNEXPECTED [None]
